FAERS Safety Report 9656469 (Version 1)
Quarter: 2013Q4

REPORT INFORMATION
  Report Type: Spontaneous
  Country: US (occurrence: US)
  Receive Date: 20131030
  Receipt Date: 20131030
  Transmission Date: 20140711
  Serious: Yes (Other)
  Sender: FDA-Public Use
  Company Number: US-UCBSA-101511

PATIENT
  Sex: Male

DRUGS (2)
  1. VIMPAT [Suspect]
  2. VIMPAT [Suspect]

REACTIONS (9)
  - Febrile convulsion [Unknown]
  - Muscle twitching [Unknown]
  - Aspiration [Unknown]
  - Convulsion [Unknown]
  - Skin exfoliation [Unknown]
  - Rash [Unknown]
  - Choking [Unknown]
  - Cough [Unknown]
  - Vomiting [Unknown]
